FAERS Safety Report 5787106-X (Version None)
Quarter: 2008Q2

REPORT INFORMATION
  Report Type: 
  Country: None (occurrence: None)
  Receive Date: 20080620
  Receipt Date: 20080620
  Transmission Date: 20081010
  Serious: Yes (Hospitalization)
  Sender: FDA-Public Use
  Company Number: None

PATIENT
  Age: 55 Year
  Weight: 51 kg

DRUGS (2)
  1. VORICONAZOLE [Suspect]
     Indication: INFECTION
     Dosage: 150MG Q12H PO
     Route: 048
     Dates: start: 20080312, end: 20080318
  2. VORICONAZOLE [Suspect]
     Indication: PNEUMONIA
     Dosage: 150MG Q12H PO
     Route: 048
     Dates: start: 20080312, end: 20080318

REACTIONS (3)
  - DYSPNOEA [None]
  - HALLUCINATION, VISUAL [None]
  - PSYCHOTIC DISORDER [None]
